FAERS Safety Report 9696310 (Version 4)
Quarter: 2014Q2

REPORT INFORMATION
  Report Type: Report from Study
  Country: US (occurrence: US)
  Receive Date: 20131119
  Receipt Date: 20140619
  Transmission Date: 20141212
  Serious: Yes (Hospitalization)
  Sender: FDA-Public Use
  Company Number: US-JNJFOC-20130604372

PATIENT
  Age: 82 Year
  Sex: Male

DRUGS (8)
  1. IBRUTINIB [Suspect]
     Route: 048
  2. IBRUTINIB [Suspect]
     Indication: WALDENSTROM^S MACROGLOBULINAEMIA
     Route: 048
     Dates: start: 20121018, end: 20130602
  3. ACTOS [Concomitant]
     Route: 048
  4. ALLOPURINOL [Concomitant]
     Route: 048
  5. GLYBURIDE [Concomitant]
     Route: 048
  6. LEVOTHYROXINE SODIUM [Concomitant]
     Route: 048
  7. MULTIVITAMINS [Concomitant]
     Route: 048
  8. SAW PALMETTO [Concomitant]
     Route: 048

REACTIONS (1)
  - Streptococcal endocarditis [Recovered/Resolved]
